FAERS Safety Report 9413545 (Version 2)
Quarter: 2013Q2

REPORT INFORMATION
  Report Type: Spontaneous
  Country: DE (occurrence: DE)
  Receive Date: 20130521
  Receipt Date: 20130624
  Transmission Date: 20140414
  Serious: Yes (Death)
  Sender: FDA-Public Use
  Company Number: 221579

PATIENT
  Age: 61 Year
  Sex: Male
  Weight: 93 kg

DRUGS (1)
  1. INNOHEP (TINZAPARIN SODIUM) [Suspect]
     Indication: DEEP VEIN THROMBOSIS
     Dosage: (1 IN 1 D,) SUBCUTANEOUS
     Route: 058
     Dates: start: 20120714

REACTIONS (1)
  - Death [None]
